FAERS Safety Report 14661496 (Version 3)
Quarter: 2018Q3

REPORT INFORMATION
  Report Type: Spontaneous
  Country: GB (occurrence: GB)
  Receive Date: 20180320
  Receipt Date: 20180926
  Transmission Date: 20181010
  Serious: Yes (Life-Threatening, Hospitalization, Other)
  Sender: FDA-Public Use
  Company Number: GB-MYLANLABS-2018M1018015

PATIENT
  Age: 47 Year
  Sex: Female
  Weight: 111 kg

DRUGS (7)
  1. CLOZAPINE. [Suspect]
     Active Substance: CLOZAPINE
     Dosage: UNK
     Route: 048
     Dates: start: 20180121, end: 20180129
  2. CLOZAPINE. [Suspect]
     Active Substance: CLOZAPINE
     Dosage: 150 MG, QD
     Route: 048
     Dates: start: 20180128, end: 20180130
  3. HALOPERIDOL. [Concomitant]
     Active Substance: HALOPERIDOL
     Indication: SCHIZOPHRENIA
     Dosage: UNK
  4. HYOSCINE HYDROBROMIDE [Concomitant]
     Active Substance: SCOPOLAMINE
     Dosage: UNK
  5. CLOZAPINE. [Suspect]
     Active Substance: CLOZAPINE
     Indication: SCHIZOPHRENIA
     Dosage: 175 MG, UNK
     Route: 048
     Dates: start: 20180112, end: 20180128
  6. LORAZEPAM. [Concomitant]
     Active Substance: LORAZEPAM
     Indication: SCHIZOPHRENIA
     Dosage: UNK
  7. CLOZAPINE. [Suspect]
     Active Substance: CLOZAPINE
     Dosage: UNK
     Dates: start: 2018

REACTIONS (10)
  - Dyspnoea [Unknown]
  - Cardiomegaly [Unknown]
  - Pyrexia [Unknown]
  - Myocarditis [Recovered/Resolved]
  - Hyperhidrosis [Unknown]
  - Influenza like illness [Unknown]
  - Lower respiratory tract infection [Unknown]
  - Malaise [Unknown]
  - Tachycardia [Unknown]
  - Lethargy [Unknown]

NARRATIVE: CASE EVENT DATE: 2018
